FAERS Safety Report 7903241-1 (Version None)
Quarter: 2011Q4

REPORT INFORMATION
  Report Type: 
  Country: None (occurrence: None)
  Receive Date: 20111109
  Receipt Date: 20111101
  Transmission Date: 20120403
  Serious: Yes (Death, Life-Threatening, Hospitalization, Disabling)
  Sender: FDA-Public Use
  Company Number: US-JNJFOC-20110910375

PATIENT
  Sex: Female
  Weight: 81.6 kg

DRUGS (6)
  1. REMICADE [Suspect]
     Dosage: 1000 MG
     Route: 042
     Dates: start: 20110902
  2. HYDROCORTISONE [Suspect]
     Indication: CROHN'S DISEASE
     Route: 042
     Dates: start: 20110906, end: 20110920
  3. REMICADE [Suspect]
     Indication: CROHN'S DISEASE
     Dosage: 400 MG
     Route: 042
     Dates: start: 20110815
  4. HYDROCORTISONE [Suspect]
     Route: 042
     Dates: start: 20110802
  5. ENTOCORT EC [Suspect]
     Indication: CROHN'S DISEASE
     Route: 048
     Dates: start: 20110701, end: 20110906
  6. REMICADE [Suspect]
     Dosage: 400 MG
     Route: 042
     Dates: start: 20110725

REACTIONS (11)
  - RESPIRATORY FAILURE [None]
  - PNEUMOCYSTIS JIROVECI PNEUMONIA [None]
  - ZYGOMYCOSIS [None]
  - PNEUMONIA KLEBSIELLA [None]
  - FUSARIUM INFECTION [None]
  - PNEUMONIA FUNGAL [None]
  - PNEUMONIA [None]
  - OSTEOMYELITIS [None]
  - DIARRHOEA [None]
  - CYTOMEGALOVIRUS INFECTION [None]
  - ILEITIS [None]
